FAERS Safety Report 17524166 (Version 1)
Quarter: 2020Q1

REPORT INFORMATION
  Report Type: Spontaneous
  Country: US (occurrence: US)
  Receive Date: 20200302
  Receipt Date: 20200302
  Transmission Date: 20200409
  Serious: Yes (Hospitalization)
  Sender: FDA-Public Use
  Company Number: None

PATIENT
  Age: 61 Year
  Sex: Female

DRUGS (11)
  1. FERREX [Concomitant]
     Active Substance: FERRIC POLYSACCHARIDE COMPLEX
  2. PENTASA [Concomitant]
     Active Substance: MESALAMINE
  3. BUDESONIDE. [Concomitant]
     Active Substance: BUDESONIDE
  4. VITAMIN E [Concomitant]
     Active Substance: .ALPHA.-TOCOPHEROL
  5. VITAMIN D3 [Concomitant]
     Active Substance: CHOLECALCIFEROL
  6. HUMIRA [Suspect]
     Active Substance: ADALIMUMAB
     Indication: CROHN^S DISEASE
     Route: 058
     Dates: start: 20140220
  7. SYNTHROID [Concomitant]
     Active Substance: LEVOTHYROXINE SODIUM
  8. XANAX [Concomitant]
     Active Substance: ALPRAZOLAM
  9. LEXAPRO [Concomitant]
     Active Substance: ESCITALOPRAM OXALATE
  10. LIPITOR [Concomitant]
     Active Substance: ATORVASTATIN CALCIUM
  11. LIQUID B12 [Concomitant]

REACTIONS (2)
  - Condition aggravated [None]
  - Intestinal obstruction [None]

NARRATIVE: CASE EVENT DATE: 20200226
